FAERS Safety Report 7209384-2 (Version None)
Quarter: 2010Q4

REPORT INFORMATION
  Report Type: 
  Country: None (occurrence: None)
  Receive Date: 20101222
  Receipt Date: 20101202
  Transmission Date: 20110411
  Serious: No
  Sender: FDA-Public Use
  Company Number: 2010-01035

PATIENT
  Sex: Female
  Weight: 63.05 kg

DRUGS (1)
  1. ZICAM COLD REMEDY GEL SWABS [Suspect]
     Dosage: AS DIRECTED,1-1 1/2 YRS,  APX 2008-2009
     Dates: start: 20080101, end: 20090101

REACTIONS (1)
  - PAROSMIA [None]
